FAERS Safety Report 11168144 (Version 1)
Quarter: 2015Q2

REPORT INFORMATION
  Report Type: Spontaneous
  Country: US (occurrence: US)
  Receive Date: 20150605
  Receipt Date: 20150605
  Transmission Date: 20150821
  Serious: No
  Sender: FDA-Public Use
  Company Number: US-PFIZER INC-2015179677

PATIENT
  Age: 26 Year
  Sex: Female
  Weight: 54 kg

DRUGS (1)
  1. INFANTS ADVIL CONCENTRATED DROPS [Suspect]
     Active Substance: IBUPROFEN
     Dosage: 1.25 ML, UNK
     Route: 048
     Dates: start: 20150522, end: 20150522

REACTIONS (5)
  - Intentional product misuse [Recovered/Resolved]
  - Oral discomfort [Recovered/Resolved]
  - Product taste abnormal [Recovered/Resolved]
  - Drug administered to patient of inappropriate age [Recovered/Resolved]
  - Nausea [Recovered/Resolved]

NARRATIVE: CASE EVENT DATE: 20150522
